FAERS Safety Report 7314383-6 (Version None)
Quarter: 2011Q1

REPORT INFORMATION
  Report Type: 
  Country: None (occurrence: None)
  Receive Date: 20110225
  Receipt Date: 20100823
  Transmission Date: 20110831
  Serious: No
  Sender: FDA-Public Use
  Company Number: US-MYLANLABS-2010S1014288

PATIENT
  Age: 18 Year
  Sex: Female
  Weight: 53.52 kg

DRUGS (3)
  1. YAZ /01502501/ [Concomitant]
  2. AMNESTEEM [Suspect]
     Indication: ACNE
     Dates: start: 20100402
  3. AMNESTEEM [Suspect]
     Dates: end: 20100803

REACTIONS (1)
  - BLOOD TRIGLYCERIDES INCREASED [None]
